FAERS Safety Report 5452643-4 (Version None)
Quarter: 2007Q3

REPORT INFORMATION
  Report Type: 
  Country: None (occurrence: None)
  Receive Date: 20070914
  Receipt Date: 20070912
  Transmission Date: 20080115
  Serious: Yes (Other)
  Sender: FDA-Public Use
  Company Number: US-BRISTOL-MYERS SQUIBB COMPANY-13905286

PATIENT

DRUGS (6)
  1. IFOSFAMIDE [Suspect]
  2. CYCLOPHOSPHAMIDE [Suspect]
  3. ETOPOSIDE [Suspect]
  4. DOXORUBICIN HCL [Suspect]
  5. VINCRISTINE [Suspect]
  6. DACTINOMYCIN [Suspect]

REACTIONS (2)
  - ACUTE MYELOID LEUKAEMIA [None]
  - MYELODYSPLASTIC SYNDROME [None]
